FAERS Safety Report 8128236-7 (Version None)
Quarter: 2011Q4

REPORT INFORMATION
  Report Type: 
  Country: None (occurrence: None)
  Receive Date: 20111227
  Receipt Date: 20111004
  Transmission Date: 20120403
  Serious: No
  Sender: FDA-Public Use
  Company Number: PHHY2011US57800

PATIENT
  Age: 53 Year
  Sex: Female
  Weight: 72.6 kg

DRUGS (6)
  1. ZOLOFT [Concomitant]
  2. VITAMIN E [Concomitant]
  3. LUNESTA [Concomitant]
  4. CALCIUM CARBONATE [Concomitant]
  5. LOVAZA [Concomitant]
  6. GILENYA [Suspect]
     Indication: MULTIPLE SCLEROSIS
     Dosage: 0.5 MG, QD, ORAL
     Route: 048
     Dates: start: 20110501

REACTIONS (3)
  - VISUAL ACUITY REDUCED [None]
  - INSOMNIA [None]
  - ALOPECIA [None]
